FAERS Safety Report 17241142 (Version 2)
Quarter: 2020Q1

REPORT INFORMATION
  Report Type: Spontaneous
  Country: JP (occurrence: JP)
  Receive Date: 20200107
  Receipt Date: 20200122
  Transmission Date: 20200409
  Serious: Yes (Hospitalization, Other)
  Sender: FDA-Public Use
  Company Number: JP-ACCORD-169110

PATIENT
  Age: 75 Year
  Sex: Male

DRUGS (2)
  1. FLUOROURACIL. [Suspect]
     Active Substance: FLUOROURACIL
     Indication: HEPATOCELLULAR CARCINOMA
     Dosage: HEPATIC ARTERIAL INFUSION CHEMOTHERAPY (HAIC), CONTINUOUSLY ON DAYS 1-5
     Route: 013
     Dates: start: 2009, end: 2009
  2. CISPLATIN. [Suspect]
     Active Substance: CISPLATIN
     Indication: HEPATOCELLULAR CARCINOMA
     Dosage: HEPATIC ARTERIAL INFUSION CHEMOTHERAPY (HAIC), CONTINUOUSLY ON DAYS 1-5
     Route: 013
     Dates: start: 2009, end: 2009

REACTIONS (3)
  - Leukopenia [Unknown]
  - Renal impairment [Unknown]
  - Thrombocytopenia [Unknown]
